FAERS Safety Report 5471238-X (Version None)
Quarter: 2007Q3

REPORT INFORMATION
  Report Type: 
  Country: None (occurrence: None)
  Receive Date: 20070928
  Receipt Date: 20070918
  Transmission Date: 20080115
  Serious: Yes (Hospitalization, Other)
  Sender: FDA-Public Use
  Company Number: GB-ABBOTT-07P-167-0417708-00

PATIENT
  Sex: Female

DRUGS (1)
  1. CLARITHROMYCIN SUSPENSION [Suspect]
     Indication: DRUG USE FOR UNKNOWN INDICATION
     Dates: start: 20070917, end: 20070917

REACTIONS (1)
  - DEVICE OCCLUSION [None]
